FAERS Safety Report 20197926 (Version 1)
Quarter: 2021Q4

REPORT INFORMATION
  Report Type: Spontaneous
  Country: DE (occurrence: DE)
  Receive Date: 20211217
  Receipt Date: 20211217
  Transmission Date: 20220303
  Serious: Yes (Hospitalization)
  Sender: FDA-Public Use
  Company Number: None

PATIENT

DRUGS (2)
  1. ACARIZAX [Suspect]
     Active Substance: DERMATOPHAGOIDES FARINAE\DERMATOPHAGOIDES PTERONYSSINUS
     Indication: Conjunctivitis allergic
     Dosage: 1 DOSAGE FORM, QD
     Route: 048
     Dates: start: 20210502
  2. FLUTICASONE [Suspect]
     Active Substance: FLUTICASONE
     Indication: Conjunctivitis allergic
     Dosage: 2 DOSAGE FORM, PRN
     Route: 045

REACTIONS (2)
  - Swelling face [Unknown]
  - Hypersensitivity [Unknown]

NARRATIVE: CASE EVENT DATE: 20210509
